FAERS Safety Report 20440466 (Version 1)
Quarter: 2022Q1

REPORT INFORMATION
  Report Type: Spontaneous
  Country: US (occurrence: None)
  Receive Date: 20220207
  Receipt Date: 20220207
  Transmission Date: 20220424
  Serious: No
  Sender: FDA-Public Use
  Company Number: None

PATIENT
  Age: 67 Year
  Sex: Male

DRUGS (1)
  1. FLUTICASONE PROPIONATE\SALMETEROL XINAFOATE [Suspect]
     Active Substance: FLUTICASONE PROPIONATE\SALMETEROL XINAFOATE
     Indication: Chronic obstructive pulmonary disease
     Dosage: FREQUENCY : TWICE A DAY;?
     Route: 055
     Dates: start: 20210818, end: 20211202

REACTIONS (6)
  - Dyspnoea [None]
  - Throat irritation [None]
  - Dry throat [None]
  - Cough [None]
  - Wheezing [None]
  - Product substitution issue [None]

NARRATIVE: CASE EVENT DATE: 20211202
